FAERS Safety Report 5892686-X (Version None)
Quarter: 2008Q3

REPORT INFORMATION
  Report Type: 
  Country: None (occurrence: None)
  Receive Date: 20080923
  Receipt Date: 20080916
  Transmission Date: 20090109
  Serious: Yes (Hospitalization, Other)
  Sender: FDA-Public Use
  Company Number: PHHY2008GB19234

PATIENT
  Sex: Male

DRUGS (3)
  1. CLOZARIL [Suspect]
     Indication: SCHIZOPHRENIA
     Dosage: UNK
     Dates: start: 20071205, end: 20080201
  2. CLOZARIL [Suspect]
     Dosage: 150MG MANE, 200MG NOCTE
     Dates: start: 20080201, end: 20080601
  3. CLOZARIL [Suspect]
     Dosage: 200 MG, BID
     Dates: start: 20080601, end: 20080801

REACTIONS (5)
  - CONDUCTION DISORDER [None]
  - DYSPNOEA [None]
  - SUPRAVENTRICULAR TACHYCARDIA [None]
  - TACHYCARDIA [None]
  - TREATMENT NONCOMPLIANCE [None]
